FAERS Safety Report 16664986 (Version 2)
Quarter: 2020Q1

REPORT INFORMATION
  Report Type: Spontaneous
  Country: GB (occurrence: GB)
  Receive Date: 20190803
  Receipt Date: 20200227
  Transmission Date: 20200409
  Serious: Yes (Other)
  Sender: FDA-Public Use
  Company Number: GB-SUN PHARMACEUTICAL INDUSTRIES LTD-2019RR-216237

PATIENT
  Age: 59 Year
  Sex: Male
  Weight: 80 kg

DRUGS (3)
  1. SERTRALINE HYDROCHLORIDE. [Concomitant]
     Active Substance: SERTRALINE HYDROCHLORIDE
     Indication: MIXED ANXIETY AND DEPRESSIVE DISORDER
     Dosage: 2 PLUS YEARS - ONGOING
     Route: 048
  2. NAPROXEN SODIUM. [Concomitant]
     Active Substance: NAPROXEN SODIUM
     Indication: EPIDIDYMITIS
     Dosage: UP TO 660MG PER DAY PRN ; AS NECESSARY
     Route: 048
  3. CIPROFLOXACIN. [Suspect]
     Active Substance: CIPROFLOXACIN
     Indication: EPIDIDYMITIS
     Dosage: 1000 MILLIGRAM, DAILY
     Route: 048
     Dates: start: 20190611, end: 20190619

REACTIONS (4)
  - Fatigue [Recovered/Resolved]
  - Pyrexia [Recovered/Resolved]
  - Muscle fatigue [Recovered/Resolved]
  - Arthritis [Recovered/Resolved]

NARRATIVE: CASE EVENT DATE: 20190612
